FAERS Safety Report 14254577 (Version 2)
Quarter: 2018Q3

REPORT INFORMATION
  Report Type: Spontaneous
  Country: US (occurrence: US)
  Receive Date: 20171206
  Receipt Date: 20180702
  Transmission Date: 20181010
  Serious: No
  Sender: FDA-Public Use
  Company Number: US-PFIZER INC-2017520830

PATIENT
  Age: 31 Year
  Sex: Male
  Weight: 108.8 kg

DRUGS (3)
  1. GABAPENTIN. [Suspect]
     Active Substance: GABAPENTIN
     Indication: EAR PAIN
  2. GABAPENTIN. [Suspect]
     Active Substance: GABAPENTIN
     Indication: FIBROMYALGIA
  3. GABAPENTIN. [Suspect]
     Active Substance: GABAPENTIN
     Indication: RESTLESS LEGS SYNDROME
     Dosage: 600 MG, 3X/DAY (600MG CAPSULE BY MOUTH 3 TIMES DAILY)
     Route: 048
     Dates: start: 2016

REACTIONS (4)
  - Anxiety [Unknown]
  - Tachyphrenia [Unknown]
  - Drug ineffective for unapproved indication [Unknown]
  - Sleep disorder [Unknown]
